FAERS Safety Report 20967475 (Version 1)
Quarter: 2022Q2

REPORT INFORMATION
  Report Type: Spontaneous
  Country: GB (occurrence: GB)
  Receive Date: 20220616
  Receipt Date: 20220616
  Transmission Date: 20220721
  Serious: Yes (Other)
  Sender: FDA-Public Use
  Company Number: GB-MHRA-MED-202206031546585440-LRMHY

PATIENT

DRUGS (4)
  1. PREDNISOLONE [Suspect]
     Active Substance: PREDNISOLONE
     Dosage: 30 MG, QD (30MG/DAY) TABLET
     Dates: start: 20220418, end: 20220423
  2. HYDROXYCHLOROQUINE [Concomitant]
     Active Substance: HYDROXYCHLOROQUINE
     Indication: Rheumatoid arthritis
     Dosage: UNK
     Dates: start: 20210601, end: 20220603
  3. RAMIPRIL [Concomitant]
     Active Substance: RAMIPRIL
     Indication: Blood pressure measurement
     Dosage: UNK
     Dates: start: 20200601, end: 20220603
  4. VALPROATE SODIUM [Concomitant]
     Active Substance: VALPROATE SODIUM
     Indication: Generalised tonic-clonic seizure
     Dosage: UNK
     Dates: start: 19850101, end: 20220603

REACTIONS (5)
  - Blindness [Unknown]
  - Ocular discomfort [Unknown]
  - Vision blurred [Unknown]
  - Dizziness [Unknown]
  - Cataract [Not Recovered/Not Resolved]
